FAERS Safety Report 8340928-3 (Version None)
Quarter: 2012Q2

REPORT INFORMATION
  Report Type: 
  Country: None (occurrence: None)
  Receive Date: 20120503
  Receipt Date: 20120418
  Transmission Date: 20120825
  Serious: Yes (Hospitalization)
  Sender: FDA-Public Use
  Company Number: 2012-1844

PATIENT
  Age: 15 Year
  Sex: Male
  Weight: 41.9 kg

DRUGS (7)
  1. INCRELEX [Suspect]
     Indication: FAILURE TO THRIVE
     Dosage: 0.08;0.16;0.18;0.094;0.105;0.11 MG/KG (0.04;0.04;0.08;0.090.094;0;105 MG/KG, 2 IN 1 D), SUBCUTANEOUS
     Route: 058
     Dates: start: 20100715, end: 20101206
  2. INCRELEX [Suspect]
     Indication: FAILURE TO THRIVE
     Dosage: 0.08;0.16;0.18;0.094;0.105;0.11 MG/KG (0.04;0.04;0.08;0.090.094;0;105 MG/KG, 2 IN 1 D), SUBCUTANEOUS
     Route: 058
     Dates: start: 20110627
  3. INCRELEX [Suspect]
     Indication: FAILURE TO THRIVE
     Dosage: 0.08;0.16;0.18;0.094;0.105;0.11 MG/KG (0.04;0.04;0.08;0.090.094;0;105 MG/KG, 2 IN 1 D), SUBCUTANEOUS
     Route: 058
     Dates: start: 20101206, end: 20110310
  4. INCRELEX [Suspect]
     Indication: FAILURE TO THRIVE
     Dosage: 0.08;0.16;0.18;0.094;0.105;0.11 MG/KG (0.04;0.04;0.08;0.090.094;0;105 MG/KG, 2 IN 1 D), SUBCUTANEOUS
     Route: 058
     Dates: start: 20090720, end: 20091025
  5. INCRELEX [Suspect]
     Indication: FAILURE TO THRIVE
     Dosage: 0.08;0.16;0.18;0.094;0.105;0.11 MG/KG (0.04;0.04;0.08;0.090.094;0;105 MG/KG, 2 IN 1 D), SUBCUTANEOUS
     Route: 058
     Dates: start: 20090627, end: 20090719
  6. INCRELEX [Suspect]
     Indication: FAILURE TO THRIVE
     Dosage: 0.08;0.16;0.18;0.094;0.105;0.11 MG/KG (0.04;0.04;0.08;0.090.094;0;105 MG/KG, 2 IN 1 D), SUBCUTANEOUS
     Route: 058
     Dates: start: 20091026, end: 20100715
  7. INCRELEX [Suspect]
     Indication: FAILURE TO THRIVE
     Dosage: 0.08;0.16;0.18;0.094;0.105;0.11 MG/KG (0.04;0.04;0.08;0.090.094;0;105 MG/KG, 2 IN 1 D), SUBCUTANEOUS
     Route: 058
     Dates: start: 20110310, end: 20110627

REACTIONS (3)
  - TESTICULAR TORSION [None]
  - ECHINOCOCCIASIS [None]
  - INSULIN-LIKE GROWTH FACTOR INCREASED [None]
